FAERS Safety Report 18338923 (Version 1)
Quarter: 2020Q4

REPORT INFORMATION
  Report Type: Report from Study
  Country: ES (occurrence: ES)
  Receive Date: 20201002
  Receipt Date: 20201002
  Transmission Date: 20210113
  Serious: Yes (Life-Threatening, Hospitalization)
  Sender: FDA-Public Use
  Company Number: ES-TEVA-2020-ES-1832753

PATIENT
  Age: 72 Year
  Sex: Female

DRUGS (6)
  1. PROPAFENONA HIDROCLORURO [Concomitant]
     Indication: ATRIAL FIBRILLATION
     Dosage: 300 MILLIGRAM DAILY;
     Route: 048
  2. SIMVASTATINA [Concomitant]
     Active Substance: SIMVASTATIN
     Indication: HYPERLIPIDAEMIA
     Dosage: 20 MILLIGRAM DAILY;
     Route: 048
  3. ENALAPRIL MALEATO [Suspect]
     Active Substance: ENALAPRIL MALEATE
     Indication: HYPERTENSION
     Dosage: THERAPY START DATE : ASKED BUT UNKNOWN
     Route: 048
     Dates: end: 20160201
  4. BUPRENORFINA [Concomitant]
     Active Substance: BUPRENORPHINE
     Indication: PAIN
     Dosage: 1.16 MICROGRAM DAILY;
     Route: 062
     Dates: start: 201601, end: 20160201
  5. CARBAMAZEPINA [Interacting]
     Active Substance: CARBAMAZEPINE
     Indication: PAIN
     Route: 048
     Dates: start: 20160119, end: 20160131
  6. HIDROCLOROTIAZIDA [Interacting]
     Active Substance: HYDROCHLOROTHIAZIDE
     Indication: HYPERTENSION
     Dosage: || FREQUENCY UNIT: 0 DAY,THERAPY START DATE : ASKED BUT UNKNOWN
     Route: 048
     Dates: end: 20160201

REACTIONS (2)
  - Hyponatraemia [Recovered/Resolved]
  - Drug interaction [Unknown]

NARRATIVE: CASE EVENT DATE: 20160129
